FAERS Safety Report 16638595 (Version 1)
Quarter: 2019Q3

REPORT INFORMATION
  Report Type: Spontaneous
  Country: ES (occurrence: ES)
  Receive Date: 20190726
  Receipt Date: 20190726
  Transmission Date: 20191004
  Serious: Yes (Death)
  Sender: FDA-Public Use
  Company Number: ES-JNJFOC-20190724061

PATIENT
  Age: 81 Year
  Sex: Male

DRUGS (7)
  1. SEGURIL [Concomitant]
     Active Substance: FUROSEMIDE
     Indication: CARDIAC FAILURE CONGESTIVE
     Dosage: 2/1/0
     Route: 048
     Dates: start: 20170201, end: 20190702
  2. ESOMEPRAZOLE. [Concomitant]
     Active Substance: ESOMEPRAZOLE MAGNESIUM
     Route: 065
  3. SPIRIVA [Concomitant]
     Active Substance: TIOTROPIUM BROMIDE MONOHYDRATE
     Dosage: 1/24
     Route: 055
     Dates: start: 20170301
  4. PENTOXIFILINA [Concomitant]
     Active Substance: PENTOXIFYLLINE
     Indication: PERIPHERAL ISCHAEMIA
     Dosage: 1/1/1
     Route: 048
     Dates: start: 20190510, end: 20190702
  5. CANAGLIFLOZIN/METFORMIN [Suspect]
     Active Substance: CANAGLIFLOZIN\METFORMIN HYDROCHLORIDE
     Indication: DIABETIC VASCULAR DISORDER
     Route: 048
     Dates: start: 20180401, end: 20190702
  6. MICARDISPLUS [Concomitant]
     Active Substance: HYDROCHLOROTHIAZIDE\TELMISARTAN
     Dosage: 1/24
     Route: 048
     Dates: start: 20170201
  7. DIGOXINA [Concomitant]
     Active Substance: DIGOXIN
     Dosage: 1/48
     Route: 048
     Dates: start: 20160901, end: 20190702

REACTIONS (2)
  - Extremity necrosis [Fatal]
  - Toe amputation [Fatal]

NARRATIVE: CASE EVENT DATE: 201905
